FAERS Safety Report 5944980-1 (Version None)
Quarter: 2008Q4

REPORT INFORMATION
  Report Type: 
  Country: None (occurrence: None)
  Receive Date: 20081107
  Receipt Date: 20081029
  Transmission Date: 20090506
  Serious: Yes (Other)
  Sender: FDA-Public Use
  Company Number: US-MERCK-0801USA05753

PATIENT
  Age: 43 Year
  Sex: Female
  Weight: 68 kg

DRUGS (2)
  1. FOSAMAX [Suspect]
     Indication: OSTEOPOROSIS
     Route: 048
     Dates: start: 19960101
  2. FOSAMAX [Suspect]
     Route: 048
     Dates: end: 20060901

REACTIONS (17)
  - BONE LESION [None]
  - DRUG INTOLERANCE [None]
  - DRUG TOXICITY [None]
  - DYSFUNCTIONAL UTERINE BLEEDING [None]
  - FEMUR FRACTURE [None]
  - GASTRIC DISORDER [None]
  - HIP FRACTURE [None]
  - INTERVERTEBRAL DISC PROTRUSION [None]
  - LOW TURNOVER OSTEOPATHY [None]
  - NERVE INJURY [None]
  - POSTNASAL DRIP [None]
  - SINUSITIS [None]
  - SNORING [None]
  - SPONDYLOLISTHESIS [None]
  - STRESS FRACTURE [None]
  - TOOTH ABSCESS [None]
  - TOOTH DISORDER [None]
